FAERS Safety Report 19609804 (Version 1)
Quarter: 2021Q3

REPORT INFORMATION
  Report Type: Report from Study
  Country: RU (occurrence: RU)
  Receive Date: 20210726
  Receipt Date: 20210726
  Transmission Date: 20211014
  Serious: No
  Sender: FDA-Public Use
  Company Number: RU-CELGENEUS-RUS-20210704025

PATIENT
  Age: 59 Year
  Sex: Male
  Weight: 101 kg

DRUGS (1)
  1. FEDRATINIB [Suspect]
     Active Substance: FEDRATINIB
     Indication: PRIMARY MYELOFIBROSIS
     Dosage: 400 MG X 1 X 1 DAYS
     Route: 048
     Dates: start: 20210402

REACTIONS (1)
  - Vitamin B1 decreased [Recovered/Resolved]

NARRATIVE: CASE EVENT DATE: 20210430
